FAERS Safety Report 8922978 (Version 1)
Quarter: 2012Q4

REPORT INFORMATION
  Report Type: 
  Country: FR (occurrence: FR)
  Receive Date: 20121123
  Receipt Date: 20121123
  Transmission Date: 20130627
  Serious: Yes (Hospitalization)
  Sender: FDA-Public Use
  Company Number: FR-PFIZER INC-2012287495

PATIENT
  Age: 73 Year
  Sex: Male

DRUGS (7)
  1. ALDACTONE [Suspect]
     Indication: HYPERTENSION ARTERIAL
     Dosage: UNK
     Route: 048
     Dates: start: 20110110, end: 20121012
  2. AMIODARONE HCL [Suspect]
     Indication: ATRIAL FIBRILLATION
     Dosage: UNK
     Route: 048
     Dates: start: 20111220, end: 20120916
  3. CELECTOL [Suspect]
     Indication: ATRIAL FIBRILLATION
     Dosage: UNK
     Route: 048
     Dates: start: 20120202, end: 20121012
  4. RILMENIDINE [Suspect]
     Dosage: UNK
     Route: 048
     Dates: start: 20111117, end: 20121012
  5. PRADAXA [Suspect]
     Dosage: UNK
     Route: 048
     Dates: start: 20111117, end: 20121012
  6. AUGMENTIN [Concomitant]
     Dosage: UNK
     Dates: start: 201208
  7. TAVANIC [Concomitant]
     Dosage: UNK
     Dates: start: 201208

REACTIONS (1)
  - Interstitial lung disease [Not Recovered/Not Resolved]
